FAERS Safety Report 8988196 (Version 1)
Quarter: 2012Q4

REPORT INFORMATION
  Report Type: 
  Country: GB (occurrence: GB)
  Receive Date: 20121227
  Receipt Date: 20121227
  Transmission Date: 20130627
  Serious: Yes (Hospitalization)
  Sender: FDA-Public Use
  Company Number: GB-WATSON-2012-22474

PATIENT
  Age: 66 Year
  Sex: Male

DRUGS (6)
  1. CIPROFLOXACIN HYDROCHLORIDE (UNKNOWN) [Suspect]
     Indication: LOWER RESPIRATORY TRACT INFECTION
     Dosage: 500 mg, bid
     Route: 048
     Dates: start: 20121130, end: 20121202
  2. OMEPRAZOLE [Concomitant]
     Indication: LIPIDS ABNORMAL
     Dosage: regular
     Route: 065
  3. SIMVASTATIN [Concomitant]
     Indication: LIPIDS ABNORMAL
     Dosage: regular
     Route: 065
  4. IBUPROFEN [Concomitant]
     Indication: PRODUCT USED FOR UNKNOWN INDICATION
     Dosage: occasional
     Route: 065
  5. INFLUENZA VIRUS [Concomitant]
     Indication: INFLUENZA IMMUNISATION
     Dosage: UNK
     Route: 065
     Dates: start: 201210
  6. PNEUMOCOCCAL POLYSACCHARIDE VACCINE [Concomitant]
     Indication: PNEUMOCOCCAL IMMUNISATION
     Dosage: unknown
     Route: 065
     Dates: start: 201210

REACTIONS (5)
  - Palpitations [Recovering/Resolving]
  - Chest discomfort [Recovering/Resolving]
  - Dyspnoea [Recovering/Resolving]
  - Atrial fibrillation [Recovering/Resolving]
  - Electrocardiogram ST segment depression [Recovering/Resolving]
